FAERS Safety Report 6260701-X (Version None)
Quarter: 2009Q3

REPORT INFORMATION
  Report Type: 
  Country: None (occurrence: None)
  Receive Date: 20090706
  Receipt Date: 20090623
  Transmission Date: 20100115
  Serious: Yes (Other)
  Sender: FDA-Public Use
  Company Number: B0581361A

PATIENT
  Age: 66 Year
  Sex: Female

DRUGS (9)
  1. LAMIVUDINE [Suspect]
     Indication: HEPATITIS B
     Dates: start: 20010601
  2. DOXORUBICIN HCL [Suspect]
     Indication: LYMPHOMA
     Dates: start: 20010701
  3. BLEOMYCIN SULFATE [Concomitant]
  4. VINBLASTINE [Concomitant]
  5. DACARBAZINE [Concomitant]
  6. IFOSFAMIDE [Concomitant]
  7. ETOPOSIDE [Concomitant]
  8. PLATINE [Concomitant]
  9. ADEFOVIR DIPIVOXIL KIT [Concomitant]

REACTIONS (6)
  - ACUTE RESPIRATORY FAILURE [None]
  - ALANINE AMINOTRANSFERASE INCREASED [None]
  - ASPARTATE AMINOTRANSFERASE INCREASED [None]
  - DISEASE RECURRENCE [None]
  - DRUG RESISTANCE [None]
  - SEPSIS [None]
